FAERS Safety Report 16911614 (Version 2)
Quarter: 2019Q4

REPORT INFORMATION
  Report Type: Report from Study
  Country: None (occurrence: BR)
  Receive Date: 20191013
  Receipt Date: 20191015
  Transmission Date: 20200122
  Serious: Yes (Other)
  Sender: FDA-Public Use
  Company Number: BR-ABBVIE-19K-020-2959196-00

PATIENT
  Age: 64 Year
  Sex: Female
  Weight: 65 kg

DRUGS (1)
  1. HUMIRA [Suspect]
     Active Substance: ADALIMUMAB
     Indication: PSORIASIS
     Route: 058
     Dates: start: 20120712

REACTIONS (5)
  - Fall [Unknown]
  - Amnesia [Unknown]
  - Blood potassium increased [Unknown]
  - Ankle fracture [Unknown]
  - Syncope [Unknown]

NARRATIVE: CASE EVENT DATE: 201907
